FAERS Safety Report 13066590 (Version 1)
Quarter: 2016Q4

REPORT INFORMATION
  Report Type: Spontaneous
  Country: US (occurrence: US)
  Receive Date: 20161227
  Receipt Date: 20161227
  Transmission Date: 20170207
  Serious: Yes (Other)
  Sender: FDA-Public Use
  Company Number: US-JNJFOC-20161220508

PATIENT
  Sex: Female
  Weight: 81.65 kg

DRUGS (2)
  1. TOPAMAX [Suspect]
     Active Substance: TOPIRAMATE
     Indication: MIGRAINE
     Route: 048
     Dates: end: 2016
  2. TOPAMAX [Suspect]
     Active Substance: TOPIRAMATE
     Indication: MIGRAINE
     Route: 048
     Dates: start: 2016

REACTIONS (4)
  - Drug effect decreased [Unknown]
  - Neoplasm malignant [Unknown]
  - Migraine [Unknown]
  - Condition aggravated [Unknown]

NARRATIVE: CASE EVENT DATE: 2016
